FAERS Safety Report 13362962 (Version 1)
Quarter: 2017Q1

REPORT INFORMATION
  Report Type: Spontaneous
  Country: US (occurrence: US)
  Receive Date: 20170322
  Receipt Date: 20170322
  Transmission Date: 20170429
  Serious: No
  Sender: FDA-Public Use
  Company Number: None

PATIENT
  Age: 64 Year
  Sex: Female
  Weight: 71.1 kg

DRUGS (4)
  1. MULTIVITAMINS [Concomitant]
     Active Substance: VITAMINS
  2. PROBIOTIC [Concomitant]
     Active Substance: PROBIOTICS NOS
  3. SYNTHROID [Concomitant]
     Active Substance: LEVOTHYROXINE SODIUM
  4. XIIDRA [Suspect]
     Active Substance: LIFITEGRAST
     Indication: DRY EYE
     Dosage: QUANTITY:60 SINGLE USE VIAL;?
     Route: 047
     Dates: start: 20170210, end: 20170224

REACTIONS (5)
  - Ocular hyperaemia [None]
  - Hypersensitivity [None]
  - Dry eye [None]
  - Eye swelling [None]
  - Eye irritation [None]

NARRATIVE: CASE EVENT DATE: 20170210
